FAERS Safety Report 9256855 (Version 3)
Quarter: 2014Q1

REPORT INFORMATION
  Report Type: Spontaneous
  Country: AR (occurrence: AR)
  Receive Date: 20130426
  Receipt Date: 20140115
  Transmission Date: 20141002
  Serious: Yes (Other)
  Sender: FDA-Public Use
  Company Number: AR-AMGEN-ARGSP2013028858

PATIENT
  Age: 65 Year
  Sex: Female

DRUGS (5)
  1. ENBREL [Suspect]
     Indication: RHEUMATOID ARTHRITIS
     Dosage: 25 MG, 2X/WEEK
     Route: 058
     Dates: start: 20110801, end: 201304
  2. ENBREL [Suspect]
     Dosage: 25 MG, EVERY 5 DAYS
     Route: 058
     Dates: start: 201304
  3. ENBREL [Suspect]
     Dosage: 25 MG, EVERY FOUR DAYS
     Route: 065
  4. LOTRIAL                            /00574902/ [Concomitant]
     Dosage: UNK
  5. TERLOC [Concomitant]
     Dosage: UNK

REACTIONS (2)
  - Rheumatoid arthritis [Not Recovered/Not Resolved]
  - Laboratory test abnormal [Not Recovered/Not Resolved]
